FAERS Safety Report 4416470-9 (Version None)
Quarter: 2004Q3

REPORT INFORMATION
  Report Type: 
  Country: None (occurrence: None)
  Receive Date: 20040805
  Receipt Date: 20040802
  Transmission Date: 20050211
  Serious: Yes (Life-Threatening)
  Sender: FDA-Public Use
  Company Number: PHBS2004GR10132

PATIENT
  Age: 25 Year
  Sex: Male

DRUGS (8)
  1. LEPONEX [Suspect]
     Indication: SCHIZOPHRENIA
     Dosage: 50 MG/D
     Route: 048
     Dates: start: 20040710
  2. LEPONEX [Suspect]
     Dosage: 75 MG/D
     Route: 048
     Dates: start: 20040711
  3. LEPONEX [Suspect]
     Dosage: 125 MG/D
     Route: 048
     Dates: start: 20040712
  4. LEPONEX [Suspect]
     Dosage: 150 MG/D
     Route: 048
     Dates: start: 20040713
  5. LEPONEX [Suspect]
     Dosage: 250 MG/D
     Route: 048
     Dates: start: 20040714, end: 20040718
  6. LEPONEX [Suspect]
     Dosage: 500 MG/D
     Route: 048
     Dates: start: 20040719, end: 20040731
  7. LEPONEX [Suspect]
     Dosage: 400 MG/D
     Dates: start: 20040801, end: 20040802
  8. AMOXICILLIN [Concomitant]
     Dosage: 1 G, TID
     Route: 065
     Dates: start: 20040729

REACTIONS (7)
  - HEART RATE INCREASED [None]
  - HYPERCOAGULATION [None]
  - HYPERHIDROSIS [None]
  - LEUKOCYTOSIS [None]
  - PLATELET COUNT INCREASED [None]
  - PYREXIA [None]
  - WHITE BLOOD CELL COUNT INCREASED [None]
